FAERS Safety Report 25380688 (Version 2)
Quarter: 2025Q2

REPORT INFORMATION
  Report Type: Report from Study
  Country: US (occurrence: US)
  Receive Date: 20250530
  Receipt Date: 20250627
  Transmission Date: 20250717
  Serious: No
  Sender: MALLINCKRODT
  Company Number: US-MALLINCKRODT-MNK202502015

PATIENT
  Age: 54 Year
  Sex: Male

DRUGS (21)
  1. CORTICOTROPIN [Suspect]
     Active Substance: CORTICOTROPIN
     Indication: Punctate keratitis
     Route: 058
     Dates: start: 20250319, end: 2025
  2. CORTICOTROPIN [Suspect]
     Active Substance: CORTICOTROPIN
     Dates: start: 2025
  3. CLOBETASOL [Concomitant]
     Active Substance: CLOBETASOL
  4. TRIAMCINOLONE ACETONIDE [Concomitant]
     Active Substance: TRIAMCINOLONE ACETONIDE
  5. SPRAVATO [Concomitant]
     Active Substance: ESKETAMINE
  6. AZELASTINE [Concomitant]
     Active Substance: AZELASTINE
  7. ALLEGRA [BILASTINE] [Concomitant]
  8. AMLODIPINE [Concomitant]
     Active Substance: AMLODIPINE BESYLATE
  9. OMEPRAZOLE [Concomitant]
     Active Substance: OMEPRAZOLE
  10. BUPROPION [Concomitant]
     Active Substance: BUPROPION
  11. DEXTROAMPHETAMINE [Concomitant]
     Active Substance: DEXTROAMPHETAMINE
  12. LAMOTRIGINE [Concomitant]
     Active Substance: LAMOTRIGINE
  13. FOLIC ACID [Concomitant]
     Active Substance: FOLIC ACID
  14. METHOTREXATE [Concomitant]
     Active Substance: METHOTREXATE
  15. MONTELUKAST [Concomitant]
     Active Substance: MONTELUKAST
  16. POTASSIUM CITRATE [Concomitant]
     Active Substance: POTASSIUM CITRATE
  17. SULFASALAZINE [Concomitant]
     Active Substance: SULFASALAZINE
  18. TAMSULOSIN [Concomitant]
     Active Substance: TAMSULOSIN
  19. VALTREX [Concomitant]
     Active Substance: VALACYCLOVIR HYDROCHLORIDE
  20. SKYRIZI [Concomitant]
     Active Substance: RISANKIZUMAB-RZAA
  21. CLEARASIL NOS [Concomitant]
     Active Substance: UNSPECIFIED INGREDIENT
     Indication: Seborrhoea

REACTIONS (9)
  - Musculoskeletal discomfort [Unknown]
  - Gastrooesophageal reflux disease [Unknown]
  - Condition aggravated [Unknown]
  - Dyspepsia [Unknown]
  - Injection site pain [Unknown]
  - Hunger [Unknown]
  - Rash [Recovering/Resolving]
  - Inappropriate schedule of product administration [Unknown]
  - Therapeutic product effect incomplete [Unknown]

NARRATIVE: CASE EVENT DATE: 20250101
